FAERS Safety Report 9017103 (Version 2)
Quarter: 2013Q1

REPORT INFORMATION
  Report Type: Spontaneous
  Country: AU (occurrence: AU)
  Receive Date: 20130117
  Receipt Date: 20130129
  Transmission Date: 20140127
  Serious: Yes (Other)
  Sender: FDA-Public Use
  Company Number: PHHY2013AU003490

PATIENT
  Sex: Female

DRUGS (3)
  1. ACLASTA [Suspect]
     Dosage: 5 MG, EVERY 18 MONTHS
     Route: 042
     Dates: start: 2010
  2. ACLASTA [Suspect]
     Dosage: 5 MG, EVERY 18 MONTHS
     Route: 042
  3. ACLASTA [Suspect]
     Dosage: 5 MG, EVERY 18 MONTHS
     Route: 042
     Dates: start: 201212

REACTIONS (5)
  - Abscess jaw [Unknown]
  - Pulpitis dental [Not Recovered/Not Resolved]
  - Influenza like illness [Unknown]
  - Pain [Unknown]
  - Feeling cold [Unknown]
